FAERS Safety Report 20102291 (Version 1)
Quarter: 2021Q4

REPORT INFORMATION
  Report Type: Spontaneous
  Country: US (occurrence: US)
  Receive Date: 20211123
  Receipt Date: 20211123
  Transmission Date: 20220303
  Serious: Yes (Hospitalization, Other)
  Sender: FDA-Public Use
  Company Number: US-UNITED THERAPEUTICS-UNT-2021-023752

PATIENT
  Age: 41 Year
  Sex: Female
  Weight: 90.703 kg

DRUGS (2)
  1. REMODULIN [Suspect]
     Active Substance: TREPROSTINIL
     Indication: Pulmonary arterial hypertension
     Dosage: UNK, CONTINUING
     Route: 058
     Dates: start: 20201119
  2. REMODULIN [Suspect]
     Active Substance: TREPROSTINIL
     Dosage: 0.093 ?G/KG, CONTINUING
     Route: 058

REACTIONS (4)
  - Pulmonary hypertension [Unknown]
  - Pericardial effusion [Unknown]
  - Tachycardia [Unknown]
  - Cough [Unknown]

NARRATIVE: CASE EVENT DATE: 20211118
